FAERS Safety Report 7235138-7 (Version None)
Quarter: 2011Q1

REPORT INFORMATION
  Report Type: 
  Country: None (occurrence: None)
  Receive Date: 20110114
  Receipt Date: 20110114
  Transmission Date: 20110831
  Serious: Yes (Hospitalization)
  Sender: FDA-Public Use
  Company Number: None

PATIENT
  Age: 53 Year
  Sex: Male
  Weight: 134.4 kg

DRUGS (3)
  1. CLOPIDOGREL [Suspect]
     Indication: STENT PLACEMENT
     Dosage: 75 MG EVERY DAY PO
     Route: 048
     Dates: start: 20060616, end: 20110102
  2. CLOPIDOGREL [Suspect]
     Indication: VASCULAR OPERATION
     Dosage: 75 MG EVERY DAY PO
     Route: 048
     Dates: start: 20060616, end: 20110102
  3. WARFARIN SODIUM [Suspect]
     Indication: DEEP VEIN THROMBOSIS
     Dosage: 7.5 MG EVERY DAY PO
     Route: 048
     Dates: start: 20101125, end: 20110103

REACTIONS (6)
  - PAIN [None]
  - SPLENIC RUPTURE [None]
  - NAUSEA [None]
  - SPLENOMEGALY [None]
  - HAEMORRHAGE [None]
  - HYPOTENSION [None]
